FAERS Safety Report 12220121 (Version 1)
Quarter: 2016Q1

REPORT INFORMATION
  Report Type: Spontaneous
  Country: US (occurrence: US)
  Receive Date: 20160330
  Receipt Date: 20160330
  Transmission Date: 20160526
  Serious: No
  Sender: FDA-Public Use
  Company Number: US-LUPIN PHARMACEUTICALS INC.-2016-00127

PATIENT
  Sex: Male
  Weight: 78.09 kg

DRUGS (2)
  1. TRAMADOL. [Concomitant]
     Active Substance: TRAMADOL
     Indication: PRODUCT USED FOR UNKNOWN INDICATION
     Route: 065
  2. DULOXETINE DELAYED-RELEASE 60 MG CAPSULES USP [Suspect]
     Active Substance: DULOXETINE
     Indication: DIABETIC NEUROPATHY
     Route: 065

REACTIONS (1)
  - Drug ineffective [Unknown]
